FAERS Safety Report 15804599 (Version 1)
Quarter: 2019Q1

REPORT INFORMATION
  Report Type: Spontaneous
  Country: DE (occurrence: DE)
  Receive Date: 20190109
  Receipt Date: 20190109
  Transmission Date: 20190417
  Serious: Yes (Other)
  Sender: FDA-Public Use
  Company Number: PHHY2019DE001328

PATIENT
  Sex: Female
  Weight: 63.5 kg

DRUGS (4)
  1. PACLITAXEL. [Suspect]
     Active Substance: PACLITAXEL
     Indication: HER-2 POSITIVE BREAST CANCER
     Dosage: 80 MG/M2, QW
     Route: 042
     Dates: start: 20140724, end: 20141023
  2. DEXAMETHASONE. [Suspect]
     Active Substance: DEXAMETHASONE
     Indication: PROPHYLAXIS
     Dosage: 8 MG, UNK
     Route: 048
     Dates: start: 20140723, end: 20141023
  3. TRASTUZUMAB. [Suspect]
     Active Substance: TRASTUZUMAB
     Indication: HER-2 POSITIVE BREAST CANCER
     Dosage: 600 MG, Q3W
     Route: 058
     Dates: start: 20140723
  4. DEXAMETHASONE. [Suspect]
     Active Substance: DEXAMETHASONE
     Dosage: 20 MG, UNK
     Route: 042

REACTIONS (21)
  - Skin laceration [Not Recovered/Not Resolved]
  - Nail discolouration [Recovered/Resolved]
  - Dry skin [Not Recovered/Not Resolved]
  - Spinal pain [Not Recovered/Not Resolved]
  - Food aversion [Recovered/Resolved]
  - Arthralgia [Not Recovered/Not Resolved]
  - Dizziness [Not Recovered/Not Resolved]
  - Oedema [Recovered/Resolved]
  - Haematoma [Not Recovered/Not Resolved]
  - Glossodynia [Recovered/Resolved]
  - Visual impairment [Not Recovered/Not Resolved]
  - Constipation [Not Recovered/Not Resolved]
  - Injection site erythema [Recovered/Resolved]
  - Muscle tightness [Recovered/Resolved]
  - Cough [Recovered/Resolved]
  - Arthralgia [Not Recovered/Not Resolved]
  - Arrhythmia [Recovered/Resolved]
  - Nail ridging [Not Recovered/Not Resolved]
  - Dry skin [Recovered/Resolved]
  - Gingival bleeding [Recovered/Resolved]
  - Injection site pain [Recovered/Resolved]

NARRATIVE: CASE EVENT DATE: 20140814
